FAERS Safety Report 15565361 (Version 2)
Quarter: 2018Q4

REPORT INFORMATION
  Report Type: Spontaneous
  Country: IQ (occurrence: IQ)
  Receive Date: 20181030
  Receipt Date: 20181205
  Transmission Date: 20190205
  Serious: Yes (Other)
  Sender: FDA-Public Use
  Company Number: PHHY2018IQ138179

PATIENT
  Age: 70 Year
  Sex: Female

DRUGS (2)
  1. EXEMESTANE. [Concomitant]
     Active Substance: EXEMESTANE
     Indication: PRODUCT USED FOR UNKNOWN INDICATION
     Route: 065
  2. AFINITOR [Suspect]
     Active Substance: EVEROLIMUS
     Indication: BREAST CANCER
     Dosage: 10 MG, QD
     Route: 048
     Dates: start: 201807, end: 20181020

REACTIONS (14)
  - Orthopnoea [Unknown]
  - Palpitations [Unknown]
  - Weight increased [Unknown]
  - Cardiac failure acute [Not Recovered/Not Resolved]
  - Jugular vein distension [Unknown]
  - Fatigue [Unknown]
  - Cough [Unknown]
  - Decreased appetite [Unknown]
  - Dyspnoea [Unknown]
  - Pulmonary oedema [Unknown]
  - Chest discomfort [Unknown]
  - Hypertension [Unknown]
  - Cardiac dysfunction [Not Recovered/Not Resolved]
  - Oedema peripheral [Not Recovered/Not Resolved]
